FAERS Safety Report 4588505-4 (Version None)
Quarter: 2005Q1

REPORT INFORMATION
  Report Type: 
  Country: None (occurrence: None)
  Receive Date: 20050215
  Receipt Date: 20050215
  Transmission Date: 20050727
  Serious: Yes (Life-Threatening, Hospitalization)
  Sender: FDA-Public Use
  Company Number: None

PATIENT
  Age: 81 Year
  Sex: Female

DRUGS (8)
  1. VYTORIN [Suspect]
     Indication: CORONARY ARTERY DISEASE
     Dates: start: 20041001, end: 20050206
  2. VYTORIN [Suspect]
     Indication: HYPERLIPIDAEMIA
     Dates: start: 20041001, end: 20050206
  3. PLAVIX [Concomitant]
  4. TOPROL-XL [Concomitant]
  5. HYZAAR [Concomitant]
  6. AMBIEN [Concomitant]
  7. ASPIRIN [Concomitant]
  8. GLUCOVANCE [Concomitant]

REACTIONS (6)
  - ABASIA [None]
  - BLOOD GASES ABNORMAL [None]
  - BLOOD POTASSIUM INCREASED [None]
  - PCO2 DECREASED [None]
  - RENAL FAILURE ACUTE [None]
  - RHABDOMYOLYSIS [None]
